FAERS Safety Report 4965152-3 (Version None)
Quarter: 2006Q1

REPORT INFORMATION
  Report Type: 
  Country: None (occurrence: None)
  Receive Date: 20060201
  Receipt Date: 20051010
  Transmission Date: 20060701
  Serious: No
  Sender: FDA-Public Use
  Company Number: 2005PV003045

PATIENT
  Age: 47 Year
  Sex: Female
  Weight: 106.5953 kg

DRUGS (3)
  1. BYETTA [Suspect]
     Indication: WEIGHT DECREASED
     Dosage: 5 MCG;BID;SC
     Route: 058
     Dates: start: 20051004
  2. DIOVAN [Concomitant]
  3. VERAPAMIL [Concomitant]

REACTIONS (4)
  - BLOOD PRESSURE INCREASED [None]
  - HEADACHE [None]
  - HEART RATE INCREASED [None]
  - NAUSEA [None]
